FAERS Safety Report 22372714 (Version 1)
Quarter: 2023Q2

REPORT INFORMATION
  Report Type: Spontaneous
  Country: US (occurrence: US)
  Receive Date: 20230526
  Receipt Date: 20230526
  Transmission Date: 20230721
  Serious: No
  Sender: FDA-Public Use
  Company Number: US-LEO Pharma-352174

PATIENT
  Age: 46 Year
  Sex: Female

DRUGS (3)
  1. TACROLIMUS [Suspect]
     Active Substance: TACROLIMUS
     Indication: Dermatitis atopic
     Route: 003
  2. DUPILUMAB [Concomitant]
     Active Substance: DUPILUMAB
     Indication: Infection
  3. CALCITRIOL [Concomitant]
     Active Substance: CALCITRIOL
     Indication: Dermatitis atopic
     Route: 003

REACTIONS (1)
  - Drug ineffective [Unknown]
